FAERS Safety Report 6144389-4 (Version None)
Quarter: 2009Q2

REPORT INFORMATION
  Report Type: 
  Country: None (occurrence: None)
  Receive Date: 20090406
  Receipt Date: 20090326
  Transmission Date: 20091009
  Serious: Yes (Hospitalization)
  Sender: FDA-Public Use
  Company Number: FR-ASTRAZENECA-2009CG00592

PATIENT
  Age: 9242 Day
  Sex: Male
  Weight: 80 kg

DRUGS (8)
  1. MOPRAL [Suspect]
     Route: 048
     Dates: start: 20090204, end: 20090218
  2. INIPOMP [Suspect]
     Indication: ABDOMINAL PAIN UPPER
     Route: 041
     Dates: start: 20090219, end: 20090224
  3. AMLODIPINE BESYLATE [Suspect]
     Route: 048
     Dates: start: 20090216
  4. AMLODIPINE BESYLATE [Suspect]
     Route: 048
     Dates: end: 20090225
  5. ZOLPIDEM [Suspect]
     Route: 048
     Dates: start: 20090204, end: 20090224
  6. CORTANCYL [Concomitant]
     Dates: start: 20090204, end: 20090212
  7. CORTANCYL [Concomitant]
     Dates: start: 20090213
  8. STROMECTOL [Concomitant]
     Route: 048
     Dates: start: 20090218, end: 20090218

REACTIONS (3)
  - BLOOD CREATINE PHOSPHOKINASE INCREASED [None]
  - HEPATOCELLULAR INJURY [None]
  - MYALGIA [None]
